APPROVED DRUG PRODUCT: DABIGATRAN ETEXILATE MESYLATE
Active Ingredient: DABIGATRAN ETEXILATE MESYLATE
Strength: EQ 75MG BASE
Dosage Form/Route: CAPSULE;ORAL
Application: A207922 | Product #001
Applicant: BRECKENRIDGE PHARMACEUTICAL INC
Approved: Dec 19, 2024 | RLD: No | RS: No | Type: DISCN